FAERS Safety Report 4316059-6 (Version None)
Quarter: 2004Q1

REPORT INFORMATION
  Report Type: 
  Country: None (occurrence: None)
  Receive Date: 20040310
  Receipt Date: 20040219
  Transmission Date: 20041129
  Serious: Yes (Hospitalization)
  Sender: FDA-Public Use
  Company Number: HQWYE636829JAN04

PATIENT
  Age: 77 Year
  Sex: Female

DRUGS (8)
  1. PANTOLOC (PANTOPRAZOLE, TABLET, DELAYED RELEASE) [Suspect]
     Indication: GASTROOESOPHAGEAL REFLUX DISEASE
     Dosage: 40 MG 1X PER 1 DAY ORAL
     Route: 048
  2. BISOPROLOL ^RATIOPHARM^ [Concomitant]
  3. AMLODIPINE [Concomitant]
  4. FOSINOPRIL SODIUM [Concomitant]
  5. LATANOPROST [Concomitant]
  6. TIMOLOL MALEATE [Concomitant]
  7. BROMAZEPAM [Concomitant]
  8. LORAZEPAM [Concomitant]

REACTIONS (9)
  - ARTHRALGIA [None]
  - BLOOD PRESSURE INCREASED [None]
  - FATIGUE [None]
  - GASTRITIS HAEMORRHAGIC [None]
  - HAEMATURIA [None]
  - HAEMOGLOBIN DECREASED [None]
  - MALAISE [None]
  - NEPHRITIS INTERSTITIAL [None]
  - TREATMENT NONCOMPLIANCE [None]
